FAERS Safety Report 23252997 (Version 3)
Quarter: 2024Q1

REPORT INFORMATION
  Report Type: Report from Study
  Country: BR (occurrence: BR)
  Receive Date: 20231201
  Receipt Date: 20240118
  Transmission Date: 20240410
  Serious: Yes (Hospitalization, Other)
  Sender: FDA-Public Use
  Company Number: BR-SANDOZ-SDZ2023BR058792

PATIENT
  Sex: Female

DRUGS (5)
  1. ADALIMUMAB [Suspect]
     Active Substance: ADALIMUMAB\ISOPROPYL ALCOHOL
     Indication: Product used for unknown indication
     Dosage: UNK
     Route: 065
     Dates: start: 202001, end: 202301
  2. HYRIMOZ [Suspect]
     Active Substance: ADALIMUMAB-ADAZ
     Indication: Product used for unknown indication
     Dosage: UNK
     Route: 065
  3. HYRIMOZ [Suspect]
     Active Substance: ADALIMUMAB-ADAZ
     Dosage: UNK
     Route: 065
  4. AZATHIOPRINE [Concomitant]
     Active Substance: AZATHIOPRINE
     Indication: Product used for unknown indication
     Dosage: UNK
     Route: 065
  5. PREDNISONE [Concomitant]
     Active Substance: PREDNISONE
     Indication: Product used for unknown indication
     Dosage: UNK
     Route: 065

REACTIONS (19)
  - Disease progression [Unknown]
  - Infection [Unknown]
  - Surgery [Unknown]
  - Skin lesion [Unknown]
  - Skin exfoliation [Unknown]
  - Wound [Unknown]
  - Conjunctivitis [Unknown]
  - Drug ineffective [Recovering/Resolving]
  - Diarrhoea [Unknown]
  - Haemorrhage [Unknown]
  - Arthritis [Unknown]
  - Photophobia [Unknown]
  - Faecal calprotectin increased [Unknown]
  - Product supply issue [Unknown]
  - Pain [Unknown]
  - Headache [Unknown]
  - Nasopharyngitis [Unknown]
  - Dysphonia [Unknown]
  - Rhinalgia [Unknown]

NARRATIVE: CASE EVENT DATE: 20210101
